FAERS Safety Report 19736535 (Version 1)
Quarter: 2021Q3

REPORT INFORMATION
  Report Type: Other
  Country: CA (occurrence: CA)
  Receive Date: 20210824
  Receipt Date: 20210824
  Transmission Date: 20211014
  Serious: No
  Sender: FDA-Public Use
  Company Number: CA-LUPIN PHARMACEUTICALS INC.-2021-15808

PATIENT
  Age: 32 Year
  Sex: Male

DRUGS (17)
  1. CEPHALEXIN. [Suspect]
     Active Substance: CEPHALEXIN
     Indication: SAPHO SYNDROME
     Dosage: UNK
     Route: 065
  2. DOXYCYCLINE HYCLATE. [Suspect]
     Active Substance: DOXYCYCLINE HYCLATE
     Indication: HIDRADENITIS
     Dosage: UNK
     Route: 065
  3. AMOXICILLIN/CLAVULANIC ACID [Suspect]
     Active Substance: AMOXICILLIN\CLAVULANIC ACID
     Indication: SAPHO SYNDROME
     Dosage: UNK
     Route: 065
  4. AMOXICILLIN/CLAVULANIC ACID [Suspect]
     Active Substance: AMOXICILLIN\CLAVULANIC ACID
     Indication: HIDRADENITIS
     Dosage: UNK
     Route: 065
  5. CLOXACILLIN [Suspect]
     Active Substance: CLOXACILLIN
     Indication: SAPHO SYNDROME
     Dosage: UNK
     Route: 065
  6. CLINDAMYCIN PHOSPHATE. [Suspect]
     Active Substance: CLINDAMYCIN PHOSPHATE
     Indication: HIDRADENITIS
     Dosage: UNK
     Route: 061
  7. DESONIDE. [Suspect]
     Active Substance: DESONIDE
     Indication: HIDRADENITIS
     Dosage: UNK (CREAM)
     Route: 065
  8. TETRACYCLINE HYDROCHLORIDE. [Suspect]
     Active Substance: TETRACYCLINE HYDROCHLORIDE
     Indication: HIDRADENITIS
     Dosage: UNK
     Route: 065
  9. BENZOYL PEROXIDE;CLINDAMYCIN PHOSPHATE [Suspect]
     Active Substance: BENZOYL PEROXIDE\CLINDAMYCIN PHOSPHATE
     Indication: SAPHO SYNDROME
     Dosage: UNK
     Route: 065
  10. CLOXACILLIN [Suspect]
     Active Substance: CLOXACILLIN
     Indication: HIDRADENITIS
     Dosage: UNK
     Route: 065
  11. BENZOYL PEROXIDE;CLINDAMYCIN PHOSPHATE [Suspect]
     Active Substance: BENZOYL PEROXIDE\CLINDAMYCIN PHOSPHATE
     Indication: HIDRADENITIS
     Dosage: UNK
     Route: 061
  12. CLINDAMYCIN PHOSPHATE. [Suspect]
     Active Substance: CLINDAMYCIN PHOSPHATE
     Indication: SAPHO SYNDROME
     Dosage: UNK (CUTANEOUS SOLUTION)
     Route: 065
  13. DESONIDE. [Suspect]
     Active Substance: DESONIDE
     Dosage: UNK (FORMULATION: UNKNOWN)
     Route: 065
  14. CEPHALEXIN. [Suspect]
     Active Substance: CEPHALEXIN
     Indication: HIDRADENITIS
     Dosage: UNK
     Route: 065
  15. DOXYCYCLINE HYCLATE. [Suspect]
     Active Substance: DOXYCYCLINE HYCLATE
     Indication: SAPHO SYNDROME
     Dosage: UNK
     Route: 065
  16. DESONIDE. [Suspect]
     Active Substance: DESONIDE
     Indication: SAPHO SYNDROME
     Dosage: UNK (CREAM)
     Route: 065
  17. TETRACYCLINE HYDROCHLORIDE. [Suspect]
     Active Substance: TETRACYCLINE HYDROCHLORIDE
     Indication: SAPHO SYNDROME
     Dosage: UNK
     Route: 065

REACTIONS (2)
  - Therapeutic product effect incomplete [Unknown]
  - Off label use [None]
